FAERS Safety Report 7578621-7 (Version None)
Quarter: 2011Q2

REPORT INFORMATION
  Report Type: 
  Country: None (occurrence: None)
  Receive Date: 20110628
  Receipt Date: 20110330
  Transmission Date: 20111010
  Serious: No
  Sender: FDA-Public Use
  Company Number: US-BAYER-2011-028361

PATIENT
  Age: 49 Year
  Sex: Male
  Weight: 74.83 kg

DRUGS (4)
  1. MAGNEVIST [Suspect]
     Indication: HEMIPARESIS
  2. MAGNEVIST [Suspect]
     Indication: DIZZINESS
     Dosage: 17 ML, ONCE
     Route: 042
     Dates: start: 20110325, end: 20110325
  3. MAGNEVIST [Suspect]
     Indication: CONVULSION
  4. ATIVAN [Concomitant]
     Indication: PREMEDICATION
     Dosage: 2 MG, UNK

REACTIONS (3)
  - NAUSEA [None]
  - VOMITING [None]
  - SKIN TIGHTNESS [None]
